FAERS Safety Report 10219842 (Version 2)
Quarter: 2018Q4

REPORT INFORMATION
  Report Type: Spontaneous
  Country: US (occurrence: US)
  Receive Date: 20140605
  Receipt Date: 20181126
  Transmission Date: 20190204
  Serious: Yes (Hospitalization, Disabling, Other)
  Sender: FDA-Public Use
  Company Number: US-TEVA-485565USA

PATIENT
  Sex: Female

DRUGS (1)
  1. PARAGARD T 380A [Suspect]
     Active Substance: COPPER
     Route: 015
     Dates: start: 200901

REACTIONS (10)
  - Proctalgia [Unknown]
  - Back pain [Unknown]
  - Abdominal pain [Unknown]
  - Pain [Unknown]
  - Maternal exposure during pregnancy [Unknown]
  - Live birth [Recovering/Resolving]
  - Vulvovaginal pain [Unknown]
  - Pregnancy with contraceptive device [Unknown]
  - Device dislocation [Unknown]
  - Pelvic pain [Unknown]

NARRATIVE: CASE EVENT DATE: 200912
